FAERS Safety Report 8607834-8 (Version None)
Quarter: 2012Q3

REPORT INFORMATION
  Report Type: 
  Country: None (occurrence: None)
  Receive Date: 20120821
  Receipt Date: 20120815
  Transmission Date: 20120928
  Serious: Yes (Other)
  Sender: FDA-Public Use
  Company Number: PHFR2011GB006437

PATIENT
  Sex: Female

DRUGS (5)
  1. TASIGNA [Suspect]
     Indication: CHRONIC MYELOID LEUKAEMIA
     Dosage: 400 MG/DAY
     Route: 048
     Dates: start: 20110401, end: 20111101
  2. ACE INHIBITORS [Concomitant]
  3. TASIGNA [Suspect]
     Dosage: UNK
  4. DIURETICS [Concomitant]
  5. METFORMIN HCL [Concomitant]

REACTIONS (2)
  - RENAL IMPAIRMENT [None]
  - RENAL TUBULAR DISORDER [None]
